FAERS Safety Report 14861762 (Version 1)
Quarter: 2018Q2

REPORT INFORMATION
  Report Type: Spontaneous
  Country: US (occurrence: US)
  Receive Date: 20180508
  Receipt Date: 20180508
  Transmission Date: 20180711
  Serious: No
  Sender: FDA-Public Use
  Company Number: US-VIFOR (INTERNATIONAL) INC.-VIT-2017-13426

PATIENT
  Sex: Female

DRUGS (9)
  1. VELTASSA [Suspect]
     Active Substance: PATIROMER
     Route: 048
  2. CLONIDINE HYDROCHLORIDE. [Concomitant]
     Active Substance: CLONIDINE HYDROCHLORIDE
  3. RENVELA [Concomitant]
     Active Substance: SEVELAMER CARBONATE
  4. KIONEX [Concomitant]
     Active Substance: SODIUM POLYSTYRENE SULFONATE
  5. CARVEDILOL. [Concomitant]
     Active Substance: CARVEDILOL
  6. VELTASSA [Suspect]
     Active Substance: PATIROMER
     Indication: HYPERKALAEMIA
     Route: 048
     Dates: start: 20160326
  7. AMLODIPINE BESILATE [Concomitant]
     Active Substance: AMLODIPINE BESYLATE
  8. ALLOPURINOL. [Concomitant]
     Active Substance: ALLOPURINOL
  9. AMIODARONE HYDROCHLORIDE. [Concomitant]
     Active Substance: AMIODARONE HYDROCHLORIDE

REACTIONS (2)
  - No adverse event [Recovered/Resolved]
  - Off label use [Unknown]

NARRATIVE: CASE EVENT DATE: 2017
